FAERS Safety Report 9423812 (Version 1)
Quarter: 2013Q3

REPORT INFORMATION
  Report Type: Spontaneous
  Country: US (occurrence: US)
  Receive Date: 20130729
  Receipt Date: 20130729
  Transmission Date: 20140515
  Serious: Yes (Death, Other)
  Sender: FDA-Public Use
  Company Number: US-AMGEN-USASP2013051996

PATIENT
  Age: 68 Year
  Sex: Female

DRUGS (1)
  1. ENBREL [Suspect]
     Indication: RHEUMATOID ARTHRITIS
     Dosage: UNK
     Route: 065
     Dates: start: 20130425, end: 2013

REACTIONS (4)
  - Death [Fatal]
  - Lung infection [Recovered/Resolved]
  - Lung neoplasm malignant [Recovered/Resolved]
  - Dehydration [Recovered/Resolved]
